FAERS Safety Report 19247236 (Version 2)
Quarter: 2021Q2

REPORT INFORMATION
  Report Type: Spontaneous
  Country: US (occurrence: US)
  Receive Date: 20210512
  Receipt Date: 20210602
  Transmission Date: 20210717
  Serious: No
  Sender: FDA-Public Use
  Company Number: US-GLENMARK PHARMACEUTICALS-2021GMK052847

PATIENT

DRUGS (2)
  1. OLMESARTAN MEDOXOMIL TABLETS, 20MG [Suspect]
     Active Substance: OLMESARTAN MEDOXOMIL
     Indication: HYPERTENSION
     Dosage: 1 DOSAGE FORM, QD
     Route: 048
     Dates: start: 20201120
  2. OLMESARTAN MEDOXOMIL TABLETS, 20MG [Suspect]
     Active Substance: OLMESARTAN MEDOXOMIL
     Dosage: 1 DOSAGE FORM, QD
     Route: 048
     Dates: start: 20210225

REACTIONS (4)
  - Therapeutic response decreased [Unknown]
  - Product quality issue [Unknown]
  - Malaise [Unknown]
  - Blood pressure increased [Not Recovered/Not Resolved]

NARRATIVE: CASE EVENT DATE: 202102
